FAERS Safety Report 8115942-3 (Version None)
Quarter: 2012Q1

REPORT INFORMATION
  Report Type: 
  Country: None (occurrence: None)
  Receive Date: 20120206
  Receipt Date: 20120131
  Transmission Date: 20120608
  Serious: Yes (Death, Other)
  Sender: FDA-Public Use
  Company Number: FR-ROCHE-1030645

PATIENT
  Sex: Female
  Weight: 71 kg

DRUGS (1)
  1. VEMURAFENIB [Suspect]
     Indication: MALIGNANT MELANOMA
     Dosage: UNKNOWN
     Route: 048
     Dates: start: 20110627, end: 20110826

REACTIONS (2)
  - KERATOACANTHOMA [None]
  - DEATH [None]
